FAERS Safety Report 11908829 (Version 2)
Quarter: 2016Q1

REPORT INFORMATION
  Report Type: Report from Study
  Country: US (occurrence: US)
  Receive Date: 20160111
  Receipt Date: 20160126
  Transmission Date: 20160526
  Serious: Yes (Hospitalization)
  Sender: FDA-Public Use
  Company Number: US-ACTELION-A-US2015-129015

PATIENT
  Age: 71 Year
  Sex: Female

DRUGS (1)
  1. VELETRI [Suspect]
     Active Substance: EPOPROSTENOL
     Indication: PULMONARY ARTERIAL HYPERTENSION
     Dosage: 16.1 NG/KG, UNK
     Route: 042
     Dates: start: 20151201

REACTIONS (16)
  - Constipation [Unknown]
  - Flushing [Unknown]
  - Fatigue [Unknown]
  - Dyspnoea [Unknown]
  - Back pain [Unknown]
  - Decreased appetite [Unknown]
  - Depression [Unknown]
  - Pain in jaw [Unknown]
  - Pain in extremity [Unknown]
  - Nausea [Unknown]
  - Headache [Unknown]
  - Nasal congestion [Unknown]
  - Malaise [Unknown]
  - Anxiety [Unknown]
  - Oedema [Unknown]
  - Nasopharyngitis [Unknown]
